FAERS Safety Report 8592807-4 (Version None)
Quarter: 2012Q3

REPORT INFORMATION
  Report Type: 
  Country: None (occurrence: None)
  Receive Date: 20120814
  Receipt Date: 20120813
  Transmission Date: 20120928
  Serious: Yes (Hospitalization, Other)
  Sender: FDA-Public Use
  Company Number: US-PFIZER INC-2012127260

PATIENT
  Age: 57 Year
  Sex: Female
  Weight: 126.9 kg

DRUGS (2)
  1. WARFARIN SODIUM [Suspect]
     Indication: THROMBOSIS
     Dosage: UNK
     Dates: start: 20110905, end: 20110101
  2. LYRICA [Suspect]
     Indication: FIBROMYALGIA
     Dosage: UNK

REACTIONS (7)
  - PAIN [None]
  - DRUG INTOLERANCE [None]
  - HAEMATEMESIS [None]
  - BACTERIAL TEST POSITIVE [None]
  - THROMBOSIS [None]
  - MENISCUS LESION [None]
  - PNEUMONIA [None]
